FAERS Safety Report 12707574 (Version 1)
Quarter: 2016Q3

REPORT INFORMATION
  Report Type: Spontaneous
  Country: FR (occurrence: FR)
  Receive Date: 20160901
  Receipt Date: 20160901
  Transmission Date: 20161109
  Serious: Yes (Other)
  Sender: FDA-Public Use
  Company Number: FR-PFIZER INC-2016397161

PATIENT
  Age: 44 Year
  Sex: Female

DRUGS (11)
  1. PERJETA [Concomitant]
     Active Substance: PERTUZUMAB
     Indication: INVASIVE DUCTAL BREAST CARCINOMA
     Dosage: 840 MG, CYCLIC
     Dates: start: 20160627, end: 20160627
  2. AZANTAC [Concomitant]
     Active Substance: RANITIDINE HYDROCHLORIDE
     Indication: PREMEDICATION
     Dosage: 50 MG, CYCLIC
     Route: 042
     Dates: start: 20160628, end: 20160628
  3. PACLITAXEL HOSPIRA [Suspect]
     Active Substance: PACLITAXEL
     Dosage: 126 MG, CYCLIC
     Route: 042
     Dates: start: 20160628, end: 20160628
  4. METOCLOPRAMIDE. [Concomitant]
     Active Substance: METOCLOPRAMIDE
     Indication: PREMEDICATION
     Dosage: UNK UNK, CYCLIC
     Dates: start: 20160617, end: 20160617
  5. METHYLPREDNISOLONE. [Concomitant]
     Active Substance: METHYLPREDNISOLONE
     Indication: PREMEDICATION
     Dosage: UNK UNK, CYCLIC
     Dates: start: 20160617, end: 20160617
  6. AVASTIN [Concomitant]
     Active Substance: BEVACIZUMAB
     Indication: INVASIVE DUCTAL BREAST CARCINOMA
     Dosage: 475 MG, CYCLIC
     Dates: start: 20160617, end: 20160617
  7. ONDANSETRON [Concomitant]
     Active Substance: ONDANSETRON
     Indication: PREMEDICATION
     Dosage: UNK UNK, CYCLIC
     Dates: start: 20160617, end: 20160617
  8. PACLITAXEL HOSPIRA [Suspect]
     Active Substance: PACLITAXEL
     Indication: INVASIVE DUCTAL BREAST CARCINOMA
     Dosage: 126 MG, CYCLIC
     Route: 042
     Dates: start: 20160617, end: 20160617
  9. METHYLPREDNISOLONE. [Concomitant]
     Active Substance: METHYLPREDNISOLONE
     Dosage: 40 MG, CYCLIC
     Route: 042
     Dates: start: 20160628, end: 20160628
  10. HERCEPTIN [Concomitant]
     Active Substance: TRASTUZUMAB
     Indication: INVASIVE DUCTAL BREAST CARCINOMA
     Dosage: 888 MG, CYCLIC
     Dates: start: 20160627, end: 20160627
  11. CETRIZINE [Concomitant]
     Active Substance: CETIRIZINE HYDROCHLORIDE
     Indication: PREMEDICATION
     Dosage: UNK UNK, CYCLIC
     Dates: start: 20160627, end: 20160627

REACTIONS (3)
  - Dyspnoea [Recovered/Resolved]
  - Cough [Recovered/Resolved]
  - Urticaria [Recovered/Resolved]

NARRATIVE: CASE EVENT DATE: 20160628
